FAERS Safety Report 7286963-8 (Version None)
Quarter: 2011Q1

REPORT INFORMATION
  Report Type: 
  Country: None (occurrence: None)
  Receive Date: 20110211
  Receipt Date: 20101217
  Transmission Date: 20110831
  Serious: No
  Sender: FDA-Public Use
  Company Number: US-BIOGENIDEC-2010BI042972

PATIENT
  Sex: Female

DRUGS (1)
  1. TYSABRI [Suspect]
     Indication: MULTIPLE SCLEROSIS
     Route: 042
     Dates: start: 20101025

REACTIONS (7)
  - COGNITIVE DISORDER [None]
  - VISION BLURRED [None]
  - HEADACHE [None]
  - SCOTOMA [None]
  - DIZZINESS [None]
  - PAIN [None]
  - HYPOTENSION [None]
